FAERS Safety Report 4826564-1 (Version None)
Quarter: 2005Q4

REPORT INFORMATION
  Report Type: 
  Country: None (occurrence: None)
  Receive Date: 20051111
  Receipt Date: 20051104
  Transmission Date: 20060501
  Serious: Yes (Hospitalization)
  Sender: FDA-Public Use
  Company Number: US-MERCK-0511USA01195

PATIENT
  Age: 44 Year
  Sex: Male

DRUGS (3)
  1. CANCIDAS [Suspect]
     Indication: SYSTEMIC MYCOSIS
     Route: 042
  2. VORICONAZOLE [Suspect]
     Indication: SYSTEMIC MYCOSIS
     Route: 065
  3. AMPHOTERICIN B AND CHOLESTEROL AND DISTEAROYLPHOSPHATIDYLGLYCEROL AND [Concomitant]
     Indication: SYSTEMIC MYCOSIS
     Route: 065

REACTIONS (1)
  - ATRIOVENTRICULAR BLOCK COMPLETE [None]
